FAERS Safety Report 6882178-3 (Version None)
Quarter: 2010Q3

REPORT INFORMATION
  Report Type: 
  Country: None (occurrence: None)
  Receive Date: 20100729
  Receipt Date: 20100723
  Transmission Date: 20110219
  Serious: Yes (Other)
  Sender: FDA-Public Use
  Company Number: US-PFIZER INC-2010045819

PATIENT
  Sex: Male

DRUGS (8)
  1. CHANTIX [Suspect]
     Indication: SMOKING CESSATION THERAPY
     Dosage: UNK
     Dates: start: 20071101, end: 20080513
  2. LISINOPRIL [Concomitant]
     Indication: BLOOD PRESSURE
     Dosage: UNK
     Dates: start: 20071201
  3. LORATADINE [Concomitant]
     Indication: HYPERSENSITIVITY
     Dosage: UNK
     Dates: start: 20071101
  4. ATENOLOL [Concomitant]
     Indication: HYPERTENSION
     Dosage: UNK
     Dates: start: 20071101
  5. HYDROCHLOROTHIAZIDE [Concomitant]
     Indication: HYPERTENSION
     Dosage: UNK
     Dates: start: 20071201
  6. NITROGLYCERIN [Concomitant]
     Indication: CHEST PAIN
     Dosage: UNK
     Dates: start: 20060801
  7. TRIAMCINOLONE ACETONIDE [Concomitant]
     Indication: ANTIINFLAMMATORY THERAPY
     Dosage: UNK
     Dates: start: 20071101
  8. ACETYLSALICYLIC ACID [Concomitant]
     Indication: ANTICOAGULANT THERAPY
     Dosage: UNK
     Dates: start: 20060801

REACTIONS (5)
  - BRAIN CONTUSION [None]
  - DIZZINESS [None]
  - FALL [None]
  - HEAD INJURY [None]
  - LOSS OF CONSCIOUSNESS [None]
